FAERS Safety Report 10188706 (Version 2)
Quarter: 2014Q2

REPORT INFORMATION
  Report Type: Spontaneous
  Country: NL (occurrence: NL)
  Receive Date: 20140522
  Receipt Date: 20140529
  Transmission Date: 20141212
  Serious: Yes (Other)
  Sender: FDA-Public Use
  Company Number: CHPA2014NL006831

PATIENT
  Age: 50 Year
  Sex: Female

DRUGS (3)
  1. EXCEDRIN MIGRAINE [Suspect]
     Indication: PHOTOPSIA
     Dosage: 2 DF, QD
     Route: 048
     Dates: start: 20140514, end: 20140514
  2. EXCEDRIN MIGRAINE [Suspect]
     Indication: MIGRAINE
  3. VESICARE [Concomitant]
     Dosage: 5 MG, QD, TAKEN AT 4 P.M.

REACTIONS (5)
  - Malaise [Recovered/Resolved]
  - Muscle spasms [Recovered/Resolved]
  - Feeling abnormal [Recovered/Resolved]
  - Confusional state [Recovered/Resolved]
  - Blood pressure increased [Recovered/Resolved]
